FAERS Safety Report 5927789-4 (Version None)
Quarter: 2008Q4

REPORT INFORMATION
  Report Type: 
  Country: None (occurrence: None)
  Receive Date: 20081023
  Receipt Date: 20081012
  Transmission Date: 20090506
  Serious: Yes (Life-Threatening)
  Sender: FDA-Public Use
  Company Number: ES-WYE-G02274408

PATIENT
  Sex: Male
  Weight: 63 kg

DRUGS (3)
  1. TEMSIROLIMUS [Suspect]
     Indication: RENAL CANCER STAGE IV
     Route: 042
     Dates: start: 20080718, end: 20080725
  2. TEMSIROLIMUS [Suspect]
     Route: 042
     Dates: start: 20080822, end: 20080829
  3. TEMSIROLIMUS [Suspect]
     Route: 042
     Dates: start: 20081010

REACTIONS (3)
  - BLOOD CREATININE INCREASED [None]
  - BLOOD UREA INCREASED [None]
  - PROTEINURIA [None]
